FAERS Safety Report 17895538 (Version 2)
Quarter: 2020Q2

REPORT INFORMATION
  Report Type: Spontaneous
  Country: US (occurrence: US)
  Receive Date: 20200615
  Receipt Date: 20200630
  Transmission Date: 20200714
  Serious: Yes (Hospitalization)
  Sender: FDA-Public Use
  Company Number: US-ALNYLAM PHARMACEUTICALS, INC.-ALN-2020-000905

PATIENT
  Age: 49 Year
  Sex: Male
  Weight: 69.84 kg

DRUGS (1)
  1. ONPATTRO [Suspect]
     Active Substance: PATISIRAN SODIUM
     Indication: HEREDITARY NEUROPATHIC AMYLOIDOSIS
     Dosage: 12 MILLIGRAM, Q3W
     Route: 042
     Dates: start: 20200203

REACTIONS (1)
  - Vascular access site infection [Unknown]

NARRATIVE: CASE EVENT DATE: 202006
